FAERS Safety Report 16003716 (Version 1)
Quarter: 2019Q1

REPORT INFORMATION
  Report Type: Spontaneous
  Country: US (occurrence: US)
  Receive Date: 20190226
  Receipt Date: 20190226
  Transmission Date: 20190418
  Serious: No
  Sender: FDA-Public Use
  Company Number: US-GLENMARK PHARMACEUTICALS-2018GMK039208

PATIENT

DRUGS (1)
  1. CALCIPOTRIENE CREAM 0.005% [Suspect]
     Active Substance: CALCIPOTRIENE
     Indication: PAIN
     Dosage: UNK
     Route: 065

REACTIONS (3)
  - Intercepted product prescribing error [Unknown]
  - Intercepted medication error [Unknown]
  - Product use in unapproved indication [Unknown]
